FAERS Safety Report 25073941 (Version 1)
Quarter: 2025Q1

REPORT INFORMATION
  Report Type: Spontaneous
  Country: US (occurrence: None)
  Receive Date: 20250312
  Receipt Date: 20250312
  Transmission Date: 20250409
  Serious: Yes (Hospitalization)
  Sender: FDA-CTU
  Company Number: None

PATIENT
  Sex: Male

DRUGS (2)
  1. LUMAKRAS [Suspect]
     Active Substance: SOTORASIB
     Indication: Metastasis
     Dosage: FREQUENCY : DAILY;?
     Route: 048
     Dates: start: 202411
  2. LUMAKRAS [Suspect]
     Active Substance: SOTORASIB
     Indication: Bone cancer

REACTIONS (10)
  - Malaise [None]
  - Hepatic enzyme increased [None]
  - Pyrexia [None]
  - Chills [None]
  - Nausea [None]
  - Vomiting [None]
  - Tremor [None]
  - Red blood cell count decreased [None]
  - Transfusion [None]
  - Therapy interrupted [None]
